FAERS Safety Report 4365135-0 (Version None)
Quarter: 2004Q2

REPORT INFORMATION
  Report Type: 
  Country: None (occurrence: None)
  Receive Date: 20040521
  Receipt Date: 20040506
  Transmission Date: 20050107
  Serious: Yes (Death, Life-Threatening)
  Sender: FDA-Public Use
  Company Number: 206655

PATIENT
  Age: 66 Year
  Sex: Female

DRUGS (3)
  1. HERCEPTIN [Suspect]
     Indication: BREAST CANCER
     Dosage: SEE IMAGE
     Route: 042
     Dates: start: 20040227, end: 20040227
  2. HERCEPTIN [Suspect]
     Indication: BREAST CANCER
     Dosage: SEE IMAGE
     Route: 042
     Dates: start: 20040305, end: 20040311
  3. PACLITAXEL [Concomitant]

REACTIONS (3)
  - METASTASES TO MENINGES [None]
  - RENAL FAILURE [None]
  - SOMNOLENCE [None]
